FAERS Safety Report 15433961 (Version 3)
Quarter: 2021Q3

REPORT INFORMATION
  Report Type: Report from Study
  Country: UG (occurrence: UG)
  Receive Date: 20180927
  Receipt Date: 20210920
  Transmission Date: 20211014
  Serious: Yes (Hospitalization, Congenital Anomaly, Other)
  Sender: FDA-Public Use
  Company Number: UG-VIIV HEALTHCARE LIMITED-UG2018GSK068542

PATIENT
  Age: 12 Day
  Sex: Male

DRUGS (2)
  1. DOLUTEGRAVIR [Suspect]
     Active Substance: DOLUTEGRAVIR
     Indication: HIV INFECTION
     Dosage: 50 MG, QD
     Route: 064
     Dates: start: 20180221
  2. LAMIVUDINE + TENOFOVIR DISOPROXIL FUMARATE [Concomitant]
     Active Substance: LAMIVUDINE\TENOFOVIR DISOPROXIL FUMARATE
     Indication: HIV INFECTION
     Dosage: 300/300 MG, UNK
     Route: 064
     Dates: start: 20180221

REACTIONS (3)
  - Congenital umbilical hernia [Recovered/Resolved]
  - Neonatal asphyxia [Recovered/Resolved]
  - Birth mark [Not Recovered/Not Resolved]

NARRATIVE: CASE EVENT DATE: 20180408
